FAERS Safety Report 8440384-0 (Version None)
Quarter: 2012Q2

REPORT INFORMATION
  Report Type: 
  Country: None (occurrence: None)
  Receive Date: 20120615
  Receipt Date: 20120605
  Transmission Date: 20120825
  Serious: Yes (Hospitalization)
  Sender: FDA-Public Use
  Company Number: US-GILEAD-2012-0056183

PATIENT
  Sex: Male

DRUGS (10)
  1. EFAVIRENZ/EMTRICITABINE/TENOFOVIR DISOPROXIL FUMARATE [Suspect]
     Indication: HIV INFECTION
     Dosage: 1 DF, QD
     Route: 048
     Dates: start: 20110705
  2. LORTAB [Concomitant]
     Indication: MIGRAINE
     Dosage: UNK
     Dates: start: 20100101
  3. CLARITIN                           /00413701/ [Concomitant]
     Indication: HYPERSENSITIVITY
     Dosage: UNK
     Dates: start: 20120315
  4. NAPROXEN (ALEVE) [Concomitant]
     Indication: SCIATICA
     Dosage: UNK
     Dates: start: 20110301
  5. IMODIUM [Concomitant]
     Indication: DIARRHOEA
     Dosage: UNK
     Dates: start: 20080101
  6. FLONASE [Concomitant]
     Indication: HYPERSENSITIVITY
     Dosage: UNK
     Route: 045
     Dates: start: 20040101
  7. TYLENOL (CAPLET) [Concomitant]
     Indication: PYREXIA
     Dosage: UNK
     Dates: start: 20070101
  8. KETOCONAZOLE [Concomitant]
     Indication: DERMATITIS
     Dosage: UNK
     Dates: start: 20110301, end: 20120410
  9. IMITREX [Concomitant]
     Indication: MIGRAINE
     Dosage: UNK
     Dates: start: 20100101
  10. ZESTRIL [Concomitant]
     Indication: PRODUCT USED FOR UNKNOWN INDICATION
     Dosage: 10 G, QD

REACTIONS (1)
  - FALL [None]
